FAERS Safety Report 9472204 (Version 1)
Quarter: 2013Q3

REPORT INFORMATION
  Report Type: Spontaneous
  Country: US (occurrence: None)
  Receive Date: 20130821
  Receipt Date: 20130821
  Transmission Date: 20140515
  Serious: Yes (Hospitalization, Other)
  Sender: FDA-Public Use
  Company Number: None

PATIENT
  Age: 17 Year
  Sex: Female
  Weight: 64.86 kg

DRUGS (2)
  1. NEXPLANON [Suspect]
     Indication: MENSTRUATION IRREGULAR
     Dates: start: 20120719, end: 20130812
  2. NEXPLANON [Suspect]
     Indication: CYST
     Dates: start: 20120719, end: 20130812

REACTIONS (10)
  - Malaise [None]
  - Abdominal pain upper [None]
  - Aphagia [None]
  - Dizziness [None]
  - Vomiting [None]
  - Insomnia [None]
  - Mood swings [None]
  - Depression [None]
  - Weight increased [None]
  - Hot flush [None]
